FAERS Safety Report 5541502-4 (Version None)
Quarter: 2007Q4

REPORT INFORMATION
  Report Type: 
  Country: None (occurrence: None)
  Receive Date: 20071210
  Receipt Date: 20071130
  Transmission Date: 20080405
  Serious: Yes (Hospitalization, Other)
  Sender: FDA-Public Use
  Company Number: US-BRISTOL-MYERS SQUIBB COMPANY-14000582

PATIENT
  Age: 55 Year
  Sex: Male
  Weight: 90 kg

DRUGS (4)
  1. CETUXIMAB [Suspect]
     Indication: SQUAMOUS CELL CARCINOMA
     Dates: start: 20071008, end: 20071126
  2. CISPLATIN [Suspect]
     Indication: SQUAMOUS CELL CARCINOMA
     Dates: start: 20071008, end: 20071029
  3. RADIATION THERAPY [Suspect]
     Indication: SQUAMOUS CELL CARCINOMA
     Dosage: TOTAL DOSE = 54 GY. SCHEDULE: NO. OF FRACTIONS = 27
     Dates: end: 20071114
  4. DURAGESIC-100 [Concomitant]

REACTIONS (3)
  - HYPONATRAEMIA [None]
  - MENTAL STATUS CHANGES [None]
  - OESOPHAGEAL PAIN [None]
